FAERS Safety Report 19816207 (Version 2)
Quarter: 2021Q3

REPORT INFORMATION
  Report Type: Spontaneous
  Country: IN (occurrence: IN)
  Receive Date: 20210910
  Receipt Date: 20210918
  Transmission Date: 20211014
  Serious: Yes (Other)
  Sender: FDA-Public Use
  Company Number: IN-ROCHE-2906204

PATIENT
  Age: 77 Year
  Sex: Male
  Weight: 78.5 kg

DRUGS (3)
  1. DOCETAXEL. [Concomitant]
     Active Substance: DOCETAXEL
     Dosage: 25 MG/M2 D1, D8, D15 Q 28 DAYS
  2. ATEZOLIZUMAB. [Suspect]
     Active Substance: ATEZOLIZUMAB
     Indication: NEOPLASM MALIGNANT
     Route: 065
  3. BEVACIZUMAB. [Suspect]
     Active Substance: BEVACIZUMAB
     Indication: NEOPLASM MALIGNANT
     Dosage: 15 MG/KG, Q 3 WEEKLY X 7 DOSES
     Route: 065

REACTIONS (8)
  - Spinal osteoarthritis [Unknown]
  - Metastases to lung [Unknown]
  - Hepatic steatosis [Unknown]
  - Hepatic lesion [Unknown]
  - Brachial plexopathy [Unknown]
  - Angiopathy [Unknown]
  - Hepatic fibrosis [Unknown]
  - Off label use [Unknown]
